FAERS Safety Report 15675789 (Version 1)
Quarter: 2018Q4

REPORT INFORMATION
  Report Type: Spontaneous
  Country: US (occurrence: US)
  Receive Date: 20181120
  Receipt Date: 20181120
  Transmission Date: 20190205
  Serious: Yes (Disabling)
  Sender: FDA-Public Use
  Company Number: None

PATIENT
  Age: 46 Year
  Sex: Female
  Weight: 99 kg

DRUGS (3)
  1. VALERIAN [Concomitant]
     Active Substance: VALERIAN
  2. GREEN TEA POWDER [Concomitant]
  3. LOSARTAN POTASSIUM. [Suspect]
     Active Substance: LOSARTAN POTASSIUM
     Indication: HYPERTENSION
     Dosage: ?          QUANTITY:30 DF DOSAGE FORM;?
     Route: 048
     Dates: start: 20170703, end: 20180821

REACTIONS (5)
  - Weight increased [None]
  - Blood glucose increased [None]
  - Blister [None]
  - Scar [None]
  - Paraesthesia [None]

NARRATIVE: CASE EVENT DATE: 20170807
